FAERS Safety Report 6945534-0 (Version None)
Quarter: 2010Q3

REPORT INFORMATION
  Report Type: 
  Country: None (occurrence: None)
  Receive Date: 20100827
  Receipt Date: 20100819
  Transmission Date: 20110219
  Serious: Yes (Hospitalization)
  Sender: FDA-Public Use
  Company Number: FR-BAYER-201036875GPV

PATIENT
  Age: 62 Year
  Sex: Male

DRUGS (8)
  1. GLUCOR (ACARBOSE) [Suspect]
     Route: 048
     Dates: start: 20100501
  2. EFIENT (PRASUGREL) [Suspect]
     Route: 048
     Dates: start: 20100501
  3. KREDEX (CARVEDILOL) [Suspect]
     Route: 048
     Dates: start: 20100501
  4. PRAVASTATIN SODIUM [Suspect]
     Route: 048
     Dates: start: 20100501
  5. AMLODIPINE [Concomitant]
  6. PANTOPRAZOLE [Concomitant]
  7. KARDEGIC (ACETYLSALICYLATE LYSINE) [Concomitant]
  8. ULTRACET [Concomitant]

REACTIONS (1)
  - RENAL FAILURE ACUTE [None]
